FAERS Safety Report 25451292 (Version 2)
Quarter: 2025Q3

REPORT INFORMATION
  Report Type: Report from Study
  Country: US (occurrence: US)
  Receive Date: 20250618
  Receipt Date: 20250715
  Transmission Date: 20251020
  Serious: Yes (Hospitalization)
  Sender: ABBVIE
  Company Number: US-ABBVIE-6325972

PATIENT
  Age: 51 Year
  Sex: Female

DRUGS (2)
  1. SKYRIZI [Suspect]
     Active Substance: RISANKIZUMAB-RZAA
     Indication: Crohn^s disease
     Route: 058
     Dates: start: 20240801
  2. SKYRIZI [Suspect]
     Active Substance: RISANKIZUMAB-RZAA
     Indication: Fistula

REACTIONS (7)
  - Blood glucose decreased [Recovering/Resolving]
  - Fistula [Unknown]
  - Pulmonary thrombosis [Unknown]
  - Abdominal abscess [Unknown]
  - Fistula discharge [Not Recovered/Not Resolved]
  - Off label use [Unknown]
  - Wound [Unknown]

NARRATIVE: CASE EVENT DATE: 20250101
